FAERS Safety Report 23960801 (Version 1)
Quarter: 2024Q2

REPORT INFORMATION
  Report Type: Spontaneous
  Country: PL (occurrence: PL)
  Receive Date: 20240611
  Receipt Date: 20240611
  Transmission Date: 20240715
  Serious: Yes (Other)
  Sender: FDA-Public Use
  Company Number: None

PATIENT
  Age: 1 Year
  Sex: Male

DRUGS (1)
  1. BUDESONIDE [Suspect]
     Active Substance: BUDESONIDE
     Indication: Cough
     Dosage: NEBBUD, AMPOULE
     Route: 065
     Dates: start: 20190924, end: 20190928

REACTIONS (5)
  - Decreased appetite [Recovered/Resolved]
  - Head banging [Recovered/Resolved]
  - Screaming [Recovered/Resolved]
  - Conversion disorder [Recovered/Resolved]
  - Aggression [Recovered/Resolved]

NARRATIVE: CASE EVENT DATE: 20190926
